FAERS Safety Report 19782339 (Version 1)
Quarter: 2021Q3

REPORT INFORMATION
  Report Type: Spontaneous
  Country: US (occurrence: US)
  Receive Date: 20210902
  Receipt Date: 20210902
  Transmission Date: 20211014
  Serious: No
  Sender: FDA-Public Use
  Company Number: US-ENDO PHARMACEUTICALS INC-2020-005491

PATIENT
  Sex: Female
  Weight: 77.11 kg

DRUGS (2)
  1. PREDNISONE. [Suspect]
     Active Substance: PREDNISONE
     Indication: PAIN
     Dosage: 16 MG ONCE A MONTH
     Route: 065
  2. PREDNISONE. [Suspect]
     Active Substance: PREDNISONE
     Dosage: DOSE PACKS OF 4 MG TABLETS SPREAD THROUGHOUT THE DAY, TAPERED DOWN OVER A WEEK TO 10 DAYS
     Route: 065

REACTIONS (2)
  - Feeling abnormal [Unknown]
  - Cataract [Unknown]

NARRATIVE: CASE EVENT DATE: 2019
